FAERS Safety Report 10913105 (Version 3)
Quarter: 2015Q2

REPORT INFORMATION
  Report Type: Spontaneous
  Country: FR (occurrence: FR)
  Receive Date: 20150313
  Receipt Date: 20150505
  Transmission Date: 20150821
  Serious: Yes (Other)
  Sender: FDA-Public Use
  Company Number: FR-RECKITT BENCKISER PHARMACEUTICAL, INC-RB-076763-2015

PATIENT
  Age: 54 Year
  Sex: Male

DRUGS (3)
  1. HEROIN [Concomitant]
     Active Substance: DIACETYLMORPHINE
     Dosage: UNK
     Route: 055
  2. SUBUTEX [Suspect]
     Active Substance: BUPRENORPHINE HYDROCHLORIDE
     Indication: PRODUCT USED FOR UNKNOWN INDICATION
     Dosage: UNK
     Route: 051
     Dates: end: 201502
  3. HEROIN [Concomitant]
     Active Substance: DIACETYLMORPHINE
     Indication: PRODUCT USED FOR UNKNOWN INDICATION
     Dosage: UNK
     Route: 051

REACTIONS (9)
  - Phlebitis [Unknown]
  - Constipation [Unknown]
  - Drug abuse [Unknown]
  - Wound [Unknown]
  - Wrong technique in drug usage process [Unknown]
  - Lymphangitis [Unknown]
  - Abscess limb [Unknown]
  - Intentional product misuse [Unknown]
  - Localised infection [Unknown]

NARRATIVE: CASE EVENT DATE: 2013
